FAERS Safety Report 8145292-0 (Version None)
Quarter: 2012Q1

REPORT INFORMATION
  Report Type: 
  Country: None (occurrence: None)
  Receive Date: 20120217
  Receipt Date: 20120210
  Transmission Date: 20120608
  Serious: Yes (Death, Hospitalization)
  Sender: FDA-Public Use
  Company Number: AU-CELGENEUS-008-AB007-11111578

PATIENT
  Sex: Female
  Weight: 72.3 kg

DRUGS (18)
  1. CLINDAMYCIN [Suspect]
     Route: 065
  2. OXYCODONE HCL [Concomitant]
     Indication: PAIN
     Dosage: 10 MILLIGRAM
     Route: 048
     Dates: start: 20110213
  3. ONDANSETRON [Concomitant]
     Indication: NAUSEA
     Dosage: 4-8 MG 3X/DAY
     Route: 048
     Dates: start: 20111110
  4. GEMCITABINE [Suspect]
     Dosage: 1730MG
     Route: 041
     Dates: start: 20110211
  5. ENOXAPARIN [Concomitant]
     Indication: THROMBOSIS
     Dosage: 60 MILLIGRAM
     Route: 058
     Dates: start: 20110211
  6. ABRAXANE [Suspect]
     Dosage: 130MG
     Route: 041
     Dates: start: 20111104, end: 20111111
  7. PARACETAMOL [Concomitant]
     Indication: PAIN
     Route: 048
     Dates: start: 20110402
  8. PREGABALIN [Concomitant]
     Dosage: 50 MILLIGRAM
     Route: 048
     Dates: start: 20110728
  9. DEXAMETHASONE [Concomitant]
     Dosage: 1 MILLIGRAM
     Route: 048
     Dates: start: 20110128
  10. ABRAXANE [Suspect]
     Dosage: 216MG
     Route: 041
     Dates: start: 20110211
  11. GEMCITABINE [Suspect]
     Dosage: 1384MG
     Route: 041
     Dates: start: 20111104, end: 20111111
  12. FAMVIR [Concomitant]
     Indication: ANTIVIRAL PROPHYLAXIS
     Dosage: 250 MILLIGRAM
     Route: 048
     Dates: start: 20110211, end: 20111110
  13. ESOMEPRAZOLE [Concomitant]
     Dosage: 40 MILLIGRAM
     Route: 048
     Dates: start: 20110318
  14. LORAZEPAM [Concomitant]
     Indication: NAUSEA
     Route: 048
     Dates: start: 20110415
  15. MOVIPREP [Concomitant]
     Indication: CONSTIPATION
     Dosage: 2 TABLET
     Route: 048
     Dates: start: 20111110
  16. PARACETAMOL [Concomitant]
  17. METOCLOPRAMIDE [Concomitant]
     Indication: NAUSEA
     Dosage: 30 MILLIGRAM
     Route: 048
     Dates: start: 20111111
  18. COLOXYL [Concomitant]
     Indication: CONSTIPATION
     Route: 048
     Dates: start: 20110213

REACTIONS (2)
  - HEPATOTOXICITY [None]
  - DEATH [None]
